FAERS Safety Report 9161913 (Version 1)
Quarter: 2013Q1

REPORT INFORMATION
  Report Type: Spontaneous
  Country: US (occurrence: None)
  Receive Date: 20130221
  Receipt Date: 20130221
  Transmission Date: 20140127
  Serious: Yes (Hospitalization)
  Sender: FDA-Public Use
  Company Number: 201302012

PATIENT
  Sex: Male

DRUGS (1)
  1. TESTIM (TESTOSTERONE) [Suspect]
     Dosage: TRANSIDERMAL
     Route: 062
     Dates: start: 201208

REACTIONS (1)
  - Constipation [None]
